FAERS Safety Report 6308997-X (Version None)
Quarter: 2009Q3

REPORT INFORMATION
  Report Type: 
  Country: None (occurrence: None)
  Receive Date: 20090813
  Receipt Date: 20090807
  Transmission Date: 20100115
  Serious: Yes (Hospitalization)
  Sender: FDA-Public Use
  Company Number: FR-GILEAD-2009-0023560

PATIENT
  Sex: Male

DRUGS (5)
  1. TRUVADA [Suspect]
     Indication: HIV INFECTION
     Route: 048
     Dates: start: 20070101, end: 20090718
  2. NORVIR [Suspect]
     Route: 048
     Dates: start: 20090608, end: 20090710
  3. PREZISTA [Suspect]
     Route: 048
     Dates: start: 20090608, end: 20090710
  4. LAROXYL ROCHE [Concomitant]
     Route: 048
     Dates: start: 20080101
  5. RIVOTRIL [Concomitant]
     Dates: start: 20080101

REACTIONS (2)
  - CONDITION AGGRAVATED [None]
  - JAUNDICE CHOLESTATIC [None]
